FAERS Safety Report 4553390-3 (Version None)
Quarter: 2005Q1

REPORT INFORMATION
  Report Type: 
  Country: None (occurrence: None)
  Receive Date: 20050112
  Receipt Date: 20050103
  Transmission Date: 20050727
  Serious: Yes (Other)
  Sender: FDA-Public Use
  Company Number: 2005005211

PATIENT
  Sex: Female

DRUGS (1)
  1. CLINDA PHOSPHATE [Suspect]
     Indication: ACNE
     Dosage: TOPICAL
     Route: 061
     Dates: start: 20041001

REACTIONS (9)
  - CONFUSIONAL STATE [None]
  - CRYING [None]
  - DEPERSONALISATION [None]
  - DISTURBANCE IN ATTENTION [None]
  - HEADACHE [None]
  - MEMORY IMPAIRMENT [None]
  - NIGHTMARE [None]
  - PANIC ATTACK [None]
  - VERTIGO [None]
